FAERS Safety Report 14339121 (Version 2)
Quarter: 2019Q4

REPORT INFORMATION
  Report Type: Other
  Country: GB (occurrence: GB)
  Receive Date: 20171230
  Receipt Date: 20191022
  Transmission Date: 20200122
  Serious: Yes (Hospitalization, Other)
  Sender: FDA-Public Use
  Company Number: GB-GLENMARK PHARMACEUTICALS-2012GMK030280

PATIENT

DRUGS (3)
  1. SODIUM VALPROATE [Concomitant]
     Active Substance: VALPROATE SODIUM
     Indication: EPILEPSY
     Dosage: INCREASED FROM 200MG TWICE A DAY TO 800MG TWICE A DAY (THIS WAS DONE GRADUALLY
     Route: 005
  2. LAMOTRIGINE. [Suspect]
     Active Substance: LAMOTRIGINE
     Indication: EPILEPSY
     Dosage: 25 MG, BID
     Route: 048
     Dates: end: 20120520
  3. LAMOTRIGINE. [Suspect]
     Active Substance: LAMOTRIGINE
     Dosage: 25 MG, BID
     Route: 048
     Dates: start: 20120521, end: 20120601

REACTIONS (7)
  - Rash [Unknown]
  - Stevens-Johnson syndrome [Recovering/Resolving]
  - Conjunctival disorder [Unknown]
  - Oral disorder [Unknown]
  - Pyrexia [Unknown]
  - Rash erythematous [Not Recovered/Not Resolved]
  - Platelet count decreased [Not Recovered/Not Resolved]

NARRATIVE: CASE EVENT DATE: 20120602
